FAERS Safety Report 11199947 (Version 1)
Quarter: 2015Q2

REPORT INFORMATION
  Report Type: Spontaneous
  Country: US (occurrence: None)
  Receive Date: 20150617
  Receipt Date: 20150617
  Transmission Date: 20150821
  Serious: Yes (Other)
  Sender: FDA-Public Use
  Company Number: None

PATIENT
  Age: 77 Year
  Sex: Female

DRUGS (1)
  1. OXYCODONE 30 MG TABLETS (KVK-TECH) [Suspect]
     Active Substance: OXYCODONE
     Indication: PAIN
     Dosage: 180 TABLETS 5-6 TIMES DAILY
     Route: 048

REACTIONS (2)
  - Drug effect decreased [None]
  - Product substitution issue [None]

NARRATIVE: CASE EVENT DATE: 20150603
